FAERS Safety Report 10078363 (Version 1)
Quarter: 2014Q2

REPORT INFORMATION
  Report Type: Other
  Country: GB (occurrence: GB)
  Receive Date: 20140415
  Receipt Date: 20140415
  Transmission Date: 20141212
  Serious: Yes (Death, Hospitalization)
  Sender: FDA-Public Use
  Company Number: GB-TARO PHARMACEUTICALS U.S.A., INC-2014SUN00806

PATIENT
  Age: 86 Year
  Sex: Female

DRUGS (10)
  1. WARFARIN [Suspect]
     Indication: PRODUCT USED FOR UNKNOWN INDICATION
     Dosage: UNK
     Route: 048
  2. FLUOXETINE [Suspect]
     Indication: PRODUCT USED FOR UNKNOWN INDICATION
     Route: 048
  3. DIGOXIN [Concomitant]
     Route: 048
  4. MORPHINE [Concomitant]
     Dosage: AS REQUIRED
     Route: 048
  5. SIMVASTATIN [Concomitant]
     Dosage: AT NIGHT
  6. FUROSEMIDE [Concomitant]
  7. GLYCERYL TRINITRATE [Concomitant]
  8. SENNA [Concomitant]
     Dosage: AT NIGHT
  9. SODIUM CHLORIDE [Concomitant]
  10. ORAMORPH [Concomitant]

REACTIONS (2)
  - Chest pain [Unknown]
  - Gastrointestinal haemorrhage [Unknown]
